FAERS Safety Report 5928592-1 (Version None)
Quarter: 2008Q3

REPORT INFORMATION
  Report Type: 
  Country: None (occurrence: None)
  Receive Date: 20080923
  Receipt Date: 20080307
  Transmission Date: 20090109
  Serious: Yes (Life-Threatening, Hospitalization, Other)
  Sender: FDA-Public Use
  Company Number: WAES 0803USA01207

PATIENT
  Age: 55 Year
  Sex: Male
  Weight: 95.2554 kg

DRUGS (3)
  1. VYTORIN [Suspect]
     Indication: BLOOD CHOLESTEROL
     Dosage: 10-40 MG DAILY PO
     Route: 048
     Dates: start: 20070607, end: 20080110
  2. VYTORIN [Suspect]
     Indication: LIPIDS
     Dosage: 10-40 MG DAILY PO
     Route: 048
     Dates: start: 20070607, end: 20080110
  3. PROTONIX [Concomitant]

REACTIONS (2)
  - GALLBLADDER DISORDER [None]
  - RHABDOMYOLYSIS [None]
